FAERS Safety Report 25188838 (Version 1)
Quarter: 2025Q2

REPORT INFORMATION
  Report Type: Spontaneous
  Country: US (occurrence: None)
  Receive Date: 20250410
  Receipt Date: 20250410
  Transmission Date: 20250717
  Serious: Yes (Hospitalization)
  Sender: FDA-CTU
  Company Number: None

PATIENT
  Age: 53 Year
  Sex: Female

DRUGS (2)
  1. KISQALI [Suspect]
     Active Substance: RIBOCICLIB SUCCINATE
     Indication: Breast cancer female
     Dosage: FREQUENCY : DAILY;?
  2. ZOLEDRONIC ACID [Suspect]
     Active Substance: ZOLEDRONIC ACID

REACTIONS (7)
  - Nausea [None]
  - Device related infection [None]
  - Haemoglobin decreased [None]
  - Red blood cell count decreased [None]
  - White blood cell count decreased [None]
  - Vitamin B12 decreased [None]
  - Immunodeficiency [None]
